FAERS Safety Report 12856721 (Version 1)
Quarter: 2016Q4

REPORT INFORMATION
  Report Type: Spontaneous
  Country: US (occurrence: US)
  Receive Date: 20161018
  Receipt Date: 20161018
  Transmission Date: 20170207
  Serious: Yes (Disabling)
  Sender: FDA-Public Use
  Company Number: None

PATIENT
  Age: 25 Year
  Sex: Male

DRUGS (4)
  1. YUTOPAR [Suspect]
     Active Substance: RITODRINE HYDROCHLORIDE
     Indication: PREMATURE LABOUR
     Dosage: TAKEN - IV FIRST - THEN ORAL DURING REMAINING PREGNANCY
     Route: 042
     Dates: start: 19910301, end: 19910501
  2. WELLBUTRIN [Concomitant]
     Active Substance: BUPROPION HYDROCHLORIDE
  3. SEROQUEL [Concomitant]
     Active Substance: QUETIAPINE FUMARATE
  4. MELATONIN [Concomitant]
     Active Substance: MELATONIN

REACTIONS (22)
  - Mental disorder [None]
  - Depression [None]
  - Obsessive-compulsive disorder [None]
  - Body dysmorphic disorder [None]
  - Impaired work ability [None]
  - Maternal exposure during pregnancy [None]
  - Attention deficit/hyperactivity disorder [None]
  - Schizoaffective disorder [None]
  - Psychotic disorder [None]
  - Maternal drugs affecting foetus [None]
  - Pregnancy [None]
  - Premature labour [None]
  - Dyspepsia [None]
  - Emotional disorder [None]
  - Panic attack [None]
  - Delusion [None]
  - Cardiac murmur [None]
  - Anger [None]
  - Social anxiety disorder [None]
  - Heart rate irregular [None]
  - Autism spectrum disorder [None]
  - Hallucination [None]
